FAERS Safety Report 6669438-6 (Version None)
Quarter: 2010Q2

REPORT INFORMATION
  Report Type: 
  Country: None (occurrence: None)
  Receive Date: 20100406
  Receipt Date: 20100324
  Transmission Date: 20101027
  Serious: Yes (Other)
  Sender: FDA-Public Use
  Company Number: PHHY2009AU38539

PATIENT
  Sex: Male

DRUGS (3)
  1. GLEEVEC [Suspect]
     Indication: CHRONIC MYELOID LEUKAEMIA
     Dosage: 400 MG, UNK
     Route: 048
  2. GLEEVEC [Suspect]
     Dosage: 200 MG DAILY
     Route: 048
     Dates: start: 20100323
  3. SUTENT [Suspect]
     Indication: LUNG NEOPLASM MALIGNANT
     Dosage: HALF DOSAGE

REACTIONS (1)
  - GENE MUTATION IDENTIFICATION TEST POSITIVE [None]
